FAERS Safety Report 17125014 (Version 1)
Quarter: 2019Q4

REPORT INFORMATION
  Report Type: Spontaneous
  Country: RU (occurrence: RU)
  Receive Date: 20191206
  Receipt Date: 20191206
  Transmission Date: 20200122
  Serious: Yes (Hospitalization)
  Sender: FDA-Public Use
  Company Number: RU-PFIZER INC-2019523737

PATIENT
  Age: 78 Year
  Sex: Female

DRUGS (1)
  1. JAQINUS [Suspect]
     Active Substance: TOFACITINIB CITRATE
     Dosage: 5 MG, 2X/DAY
     Dates: end: 20191130

REACTIONS (3)
  - Sinusitis [Unknown]
  - Bacteraemia [Unknown]
  - Listeriosis [Unknown]

NARRATIVE: CASE EVENT DATE: 20191130
